FAERS Safety Report 7392874-X (Version None)
Quarter: 2011Q2

REPORT INFORMATION
  Report Type: 
  Country: None (occurrence: None)
  Receive Date: 20110404
  Receipt Date: 20110329
  Transmission Date: 20111010
  Serious: Yes (Other)
  Sender: FDA-Public Use
  Company Number: CN-PFIZER INC-2011069039

PATIENT
  Age: 43 Year
  Sex: Female

DRUGS (3)
  1. CLINDAMYCIN PHOSPHATE [Suspect]
     Indication: BRONCHIECTASIS
     Dosage: 1.2 G, SINGLE
     Route: 041
     Dates: start: 20090713
  2. CEFTEZOLE SODIUM [Concomitant]
     Dosage: 2 G, 1X/DAY
     Route: 041
     Dates: start: 20090713
  3. ASCORBIC ACID [Concomitant]
     Dosage: 2 G, UNK
     Route: 041
     Dates: start: 20090713

REACTIONS (5)
  - VOMITING [None]
  - MICTURITION URGENCY [None]
  - RENAL FAILURE ACUTE [None]
  - ABDOMINAL PAIN [None]
  - HAEMATURIA [None]
